FAERS Safety Report 5672811-6 (Version None)
Quarter: 2008Q1

REPORT INFORMATION
  Report Type: 
  Country: None (occurrence: None)
  Receive Date: 20080319
  Receipt Date: 20070410
  Transmission Date: 20080703
  Serious: No
  Sender: FDA-Public Use
  Company Number: US-KINGPHARMUSA00001-K200700450

PATIENT

DRUGS (8)
  1. ALTACE [Suspect]
     Indication: HYPERTENSION
     Dosage: 5 MG, QD
     Route: 048
  2. ATENOLOL [Concomitant]
  3. LASIX [Concomitant]
  4. NEXIUM [Concomitant]
  5. LYRICA [Concomitant]
  6. GLIPIZIDE [Concomitant]
  7. LEVOXYL [Concomitant]
     Dosage: 1 MCG, QD
     Dates: start: 19950101
  8. POTASSIUM CHLORIDE [Concomitant]

REACTIONS (1)
  - ANDROGENETIC ALOPECIA [None]
